FAERS Safety Report 10035019 (Version 1)
Quarter: 2014Q1

REPORT INFORMATION
  Report Type: Report from Study
  Country: CN (occurrence: CN)
  Receive Date: 20140325
  Receipt Date: 20140325
  Transmission Date: 20141002
  Serious: Yes (Other)
  Sender: FDA-Public Use
  Company Number: CN-PFIZER INC-2014079858

PATIENT
  Age: 66 Year
  Sex: Male

DRUGS (8)
  1. ATORVASTATIN CALCIUM [Suspect]
     Dosage: UNK
  2. WARFARIN [Interacting]
     Dosage: 3 MG, 1X/DAY
  3. WARFARIN [Interacting]
     Dosage: 3 MG, 1X/DAY
  4. WARFARIN [Interacting]
     Dosage: 2.25 MG, 1X/DAY
  5. OMEPRAZOLE [Interacting]
     Dosage: UNK
  6. ACARBOSE [Interacting]
     Dosage: UNK
  7. PROPAFENONE [Interacting]
     Dosage: UNK
  8. LOW MOLECULAR WEIGHT HEPARIN [Interacting]
     Dosage: UNK

REACTIONS (3)
  - Drug interaction [Recovered/Resolved]
  - Mouth haemorrhage [Recovered/Resolved]
  - Haemoptysis [Recovered/Resolved]
